FAERS Safety Report 18436168 (Version 4)
Quarter: 2021Q2

REPORT INFORMATION
  Report Type: Spontaneous
  Country: JP (occurrence: JP)
  Receive Date: 20201028
  Receipt Date: 20210401
  Transmission Date: 20210717
  Serious: Yes (Death, Life-Threatening, Disabling, Other)
  Sender: FDA-Public Use
  Company Number: JP-OTSUKA-2020_026352

PATIENT
  Age: 77 Year
  Sex: Male

DRUGS (22)
  1. FLUITRAN [TRICHLORMETHIAZIDE] [Suspect]
     Active Substance: TRICHLORMETHIAZIDE
     Indication: PRODUCT USED FOR UNKNOWN INDICATION
     Dosage: 1 TAB, QD AFTER BREAKFAST
     Route: 065
     Dates: start: 20200302
  2. SAMSCA [Interacting]
     Active Substance: TOLVAPTAN
     Indication: FLUID IMBALANCE
  3. ONEALFA [Concomitant]
     Active Substance: ALFACALCIDOL
     Indication: PRODUCT USED FOR UNKNOWN INDICATION
     Dosage: 1 TAB, QD AFTER BREAKFAST
     Route: 048
     Dates: start: 20120101
  4. FEBURIC [Concomitant]
     Active Substance: FEBUXOSTAT
     Indication: PRODUCT USED FOR UNKNOWN INDICATION
     Dosage: 2 TABS/DAY, QD AFTER BREAKFAST
     Route: 065
     Dates: start: 2012
  5. GASTER [Concomitant]
     Active Substance: FAMOTIDINE
     Indication: PRODUCT USED FOR UNKNOWN INDICATION
     Dosage: 1 TAB, QD AFTER BREAKFAST
     Route: 048
     Dates: start: 20191001
  6. LASIX [Concomitant]
     Active Substance: FUROSEMIDE
     Dosage: 1 TAB, QD AFTER LUNCH
     Route: 065
     Dates: start: 2013
  7. OLMETEC [Concomitant]
     Active Substance: OLMESARTAN MEDOXOMIL
     Indication: PRODUCT USED FOR UNKNOWN INDICATION
     Dosage: 1 TAB, QD AFTER BREAKFAST
     Route: 065
     Dates: start: 2013
  8. ATELEC [Concomitant]
     Active Substance: CILNIDIPINE
     Indication: PRODUCT USED FOR UNKNOWN INDICATION
     Dosage: 2 TABS/DAY, BID AFTER BREAKFAST AND DINNER
     Route: 062
     Dates: start: 20120101
  9. PREDNISOLONE. [Concomitant]
     Active Substance: PREDNISOLONE
     Indication: PRODUCT USED FOR UNKNOWN INDICATION
     Dosage: 1 TAB, QD AFTER BREAKFAST
     Route: 065
     Dates: start: 2012
  10. SAMSCA [Suspect]
     Active Substance: TOLVAPTAN
     Indication: CARDIAC FAILURE
     Dosage: 15 MG, QD, AFTER BREAKFAST
     Route: 048
     Dates: start: 20200304, end: 20200505
  11. PERSANTIN [Concomitant]
     Active Substance: DIPYRIDAMOLE
     Indication: PRODUCT USED FOR UNKNOWN INDICATION
     Dosage: 2 CAPS/DAY, BID AFTER BREAKFAST AND DINNER
     Route: 048
     Dates: start: 20120101
  12. LASIX [Concomitant]
     Active Substance: FUROSEMIDE
     Indication: PRODUCT USED FOR UNKNOWN INDICATION
     Dosage: 1 TAB, QD AFTER BREAKFAST
     Route: 065
     Dates: start: 2013
  13. PREDNISOLONE. [Concomitant]
     Active Substance: PREDNISOLONE
     Indication: PRODUCT USED FOR UNKNOWN INDICATION
     Dosage: 1 TAB, QD AFTER BREAKFAST
     Route: 065
     Dates: start: 2012
  14. FLUITRAN [TRICHLORMETHIAZIDE] [Suspect]
     Active Substance: TRICHLORMETHIAZIDE
     Dosage: 1 TAB, QD AFTER BREAKFAST
     Route: 065
     Dates: start: 2010, end: 201312
  15. URALYT [POTASSIUM CITRATE;SODIUM CITRATE DIHYDRATE] [Concomitant]
     Indication: PRODUCT USED FOR UNKNOWN INDICATION
     Dosage: 2 TABS/DAY, BID AFTER BREAKFAST AND DINNER
     Route: 048
     Dates: start: 20160101
  16. CARVEDILOL. [Concomitant]
     Active Substance: CARVEDILOL
     Indication: PRODUCT USED FOR UNKNOWN INDICATION
     Dosage: 1 TAB, QD AFTER DINNER
     Route: 048
     Dates: start: 20120101
  17. SEIBULE [Concomitant]
     Active Substance: MIGLITOL
     Indication: PRODUCT USED FOR UNKNOWN INDICATION
     Dosage: 3 TABS/DAY, TID IMMEDIATELY BEFORE EACH MEAL
     Route: 048
     Dates: start: 20140101
  18. CONIEL [Concomitant]
     Active Substance: BENIDIPINE HYDROCHLORIDE
     Indication: PRODUCT USED FOR UNKNOWN INDICATION
     Dosage: UNK
     Route: 065
  19. LASIX [Concomitant]
     Active Substance: FUROSEMIDE
     Indication: PRODUCT USED FOR UNKNOWN INDICATION
     Dosage: UNK
     Route: 042
  20. DIART [Suspect]
     Active Substance: AZOSEMIDE
     Indication: PRODUCT USED FOR UNKNOWN INDICATION
     Dosage: 1 TAB, QD AFTER BREAKFAST
     Route: 048
     Dates: start: 20200305, end: 20200505
  21. ATORVASTATIN [ATORVASTATIN CALCIUM] [Concomitant]
     Active Substance: ATORVASTATIN CALCIUM
     Indication: PRODUCT USED FOR UNKNOWN INDICATION
     Dosage: 1 TAB, QD AFTER DINNER
     Route: 048
     Dates: start: 20120101
  22. FERROMIA [Concomitant]
     Active Substance: SODIUM FERROUS CITRATE
     Indication: PRODUCT USED FOR UNKNOWN INDICATION
     Dosage: 1 TAB, QD AFTER BREAKFAST
     Route: 048
     Dates: start: 20130101

REACTIONS (5)
  - Drug interaction [Unknown]
  - Hepatorenal syndrome [Fatal]
  - Azotaemia [Fatal]
  - Hepatic failure [Fatal]
  - Hepatic cirrhosis [Fatal]

NARRATIVE: CASE EVENT DATE: 20200505
